FAERS Safety Report 10281794 (Version 1)
Quarter: 2014Q3

REPORT INFORMATION
  Report Type: Spontaneous
  Country: US (occurrence: US)
  Receive Date: 20140707
  Receipt Date: 20140707
  Transmission Date: 20150326
  Serious: Yes (Hospitalization)
  Sender: FDA-Public Use
  Company Number: US-GLAXOSMITHKLINE-A1079595A

PATIENT
  Sex: Female

DRUGS (33)
  1. LIDOCAINE CREAM [Concomitant]
  2. ARANESP [Concomitant]
     Active Substance: DARBEPOETIN ALFA
  3. LASIX [Concomitant]
     Active Substance: FUROSEMIDE
  4. AMANTADINE [Concomitant]
     Active Substance: AMANTADINE
  5. SINGULAIR [Concomitant]
     Active Substance: MONTELUKAST SODIUM
  6. NORCO [Concomitant]
     Active Substance: ACETAMINOPHEN\HYDROCODONE BITARTRATE
  7. MORPHINE SULFATE. [Concomitant]
     Active Substance: MORPHINE SULFATE
  8. POTASSIUM CHLORIDE. [Concomitant]
     Active Substance: POTASSIUM CHLORIDE
  9. IMURAN [Concomitant]
     Active Substance: AZATHIOPRINE
  10. CIALIS [Concomitant]
     Active Substance: TADALAFIL
  11. PRIMIDONE. [Concomitant]
     Active Substance: PRIMIDONE
  12. AMITIZA [Concomitant]
     Active Substance: LUBIPROSTONE
  13. METHOTREXATE [Concomitant]
     Active Substance: METHOTREXATE
  14. PREDNISONE. [Concomitant]
     Active Substance: PREDNISONE
  15. PROAIR HFA [Concomitant]
     Active Substance: ALBUTEROL SULFATE
  16. BENTYL [Concomitant]
     Active Substance: DICYCLOMINE HYDROCHLORIDE
  17. IBUPROFEN. [Concomitant]
     Active Substance: IBUPROFEN
  18. BENLYSTA [Suspect]
     Active Substance: BELIMUMAB
     Indication: SYSTEMIC LUPUS ERYTHEMATOSUS
     Route: 042
  19. FLUPROMAZINE [Concomitant]
  20. FIORICET [Concomitant]
     Active Substance: ACETAMINOPHEN\BUTALBITAL\CAFFEINE
  21. MUPIROCIN CREAM [Concomitant]
  22. TRAMADOL [Concomitant]
     Active Substance: TRAMADOL
  23. OXYGEN. [Concomitant]
     Active Substance: OXYGEN
  24. FLUCONAZOLE. [Concomitant]
     Active Substance: FLUCONAZOLE
  25. PRILOSEC [Concomitant]
     Active Substance: OMEPRAZOLE MAGNESIUM
  26. GABAPENTIN. [Concomitant]
     Active Substance: GABAPENTIN
  27. ZOFRAN [Concomitant]
     Active Substance: ONDANSETRON HYDROCHLORIDE
  28. PILOCARPINE [Concomitant]
     Active Substance: PILOCARPINE
  29. KETAMINE [Concomitant]
     Active Substance: KETAMINE
  30. BACLOFEN. [Concomitant]
     Active Substance: BACLOFEN
  31. TRILEPTAL [Concomitant]
     Active Substance: OXCARBAZEPINE
  32. ZOLOFT [Concomitant]
     Active Substance: SERTRALINE HYDROCHLORIDE
  33. TYLENOL [Concomitant]
     Active Substance: ACETAMINOPHEN

REACTIONS (14)
  - Candida infection [Unknown]
  - Insomnia [Unknown]
  - Tremor [Unknown]
  - Migraine [Not Recovered/Not Resolved]
  - Weight decreased [Not Recovered/Not Resolved]
  - Anxiety [Unknown]
  - Depression [Not Recovered/Not Resolved]
  - Cardiac failure congestive [Unknown]
  - Systemic lupus erythematosus [Not Recovered/Not Resolved]
  - Disturbance in attention [Not Recovered/Not Resolved]
  - Incoherent [Unknown]
  - Fear [Unknown]
  - Paranoia [Unknown]
  - Confusional state [Not Recovered/Not Resolved]
